FAERS Safety Report 5192611-3 (Version None)
Quarter: 2006Q4

REPORT INFORMATION
  Report Type: 
  Country: None (occurrence: None)
  Receive Date: 20061220
  Receipt Date: 20061212
  Transmission Date: 20070319
  Serious: Yes (Death, Hospitalization, Other)
  Sender: FDA-Public Use
  Company Number: 163-21880-06111157

PATIENT
  Age: 68 Year
  Sex: Female

DRUGS (11)
  1. REVLIMID [Suspect]
     Indication: MULTIPLE MYELOMA
     Dosage: SEE IMAGE
     Route: 048
     Dates: start: 20061002, end: 20060101
  2. REVLIMID [Suspect]
     Indication: MULTIPLE MYELOMA
     Dosage: SEE IMAGE
     Route: 048
     Dates: start: 20060904, end: 20060925
  3. DOXIL [Suspect]
     Indication: MULTIPLE MYELOMA
     Dates: start: 20060725, end: 20061030
  4. DEXAMETHASONE TAB [Suspect]
     Indication: MULTIPLE MYELOMA
     Dates: start: 20060328, end: 20061030
  5. NORVASC [Concomitant]
  6. RENAGEL [Concomitant]
  7. NEPHROCAPS [Concomitant]
  8. AMIODARONE HCL [Concomitant]
  9. MAGNESIUM [Concomitant]
  10. ALLOPURINOL SODIUM [Concomitant]
  11. EPOGEN [Concomitant]

REACTIONS (8)
  - ATRIAL FIBRILLATION [None]
  - CHILLS [None]
  - DISEASE PROGRESSION [None]
  - HYPERCALCAEMIA [None]
  - MULTIPLE MYELOMA [None]
  - PANCYTOPENIA [None]
  - PYREXIA [None]
  - RENAL FAILURE [None]
